FAERS Safety Report 6454853-6 (Version None)
Quarter: 2009Q4

REPORT INFORMATION
  Report Type: 
  Country: None (occurrence: None)
  Receive Date: 20091124
  Receipt Date: 20091117
  Transmission Date: 20100525
  Serious: Yes (Other)
  Sender: FDA-Public Use
  Company Number: SE-PFIZER INC-2009299207

PATIENT
  Sex: Female

DRUGS (1)
  1. XANOR [Suspect]
     Dosage: 3 MG, 1X/DAY
     Route: 048

REACTIONS (2)
  - DYSPNOEA [None]
  - PALPITATIONS [None]
